FAERS Safety Report 19001686 (Version 3)
Quarter: 2022Q3

REPORT INFORMATION
  Report Type: Spontaneous
  Country: US (occurrence: None)
  Receive Date: 20210312
  Receipt Date: 20220907
  Transmission Date: 20221027
  Serious: No
  Sender: FDA-Public Use
  Company Number: US-FARMAPROD-202011-1606

PATIENT
  Sex: Female

DRUGS (11)
  1. OXERVATE [Suspect]
     Active Substance: CENEGERMIN-BKBJ
     Indication: Neurotrophic keratopathy
     Route: 047
     Dates: start: 20201102, end: 20201228
  2. OXERVATE [Suspect]
     Active Substance: CENEGERMIN-BKBJ
     Route: 047
     Dates: start: 20210707, end: 20210831
  3. OXERVATE [Suspect]
     Active Substance: CENEGERMIN-BKBJ
     Route: 047
     Dates: start: 20211201, end: 20220125
  4. OXERVATE [Suspect]
     Active Substance: CENEGERMIN-BKBJ
     Route: 047
     Dates: start: 20220504
  5. OMEGA [Concomitant]
  6. ISOTRETINOIN [Concomitant]
     Active Substance: ISOTRETINOIN
  7. TAURINE [Concomitant]
     Active Substance: TAURINE
  8. AMBIEN [Concomitant]
     Active Substance: ZOLPIDEM TARTRATE
  9. OMEGA 3 [Concomitant]
     Active Substance: CAPSAICIN
     Dosage: 500-1000 MG
  10. METFORMIN [Concomitant]
     Active Substance: METFORMIN HYDROCHLORIDE
     Dosage: EXTENDED GASTRIC RELEASE
  11. RESTASIS [Concomitant]
     Active Substance: CYCLOSPORINE
     Dosage: EYE EMULSION

REACTIONS (13)
  - Swelling of eyelid [Unknown]
  - Visual impairment [Unknown]
  - Eye pain [Unknown]
  - Eye irritation [Unknown]
  - Product use issue [Unknown]
  - Eye swelling [Unknown]
  - Product dose omission issue [Unknown]
  - Eye inflammation [Unknown]
  - Periorbital swelling [Unknown]
  - Abnormal sensation in eye [Unknown]
  - Ocular discomfort [Unknown]
  - Periorbital pain [Unknown]
  - Wrong technique in product usage process [Unknown]
